FAERS Safety Report 4875420-1 (Version None)
Quarter: 2006Q1

REPORT INFORMATION
  Report Type: 
  Country: None (occurrence: None)
  Receive Date: 20060105
  Receipt Date: 20051223
  Transmission Date: 20060701
  Serious: Yes (Other)
  Sender: FDA-Public Use
  Company Number: 2005173538

PATIENT
  Sex: Male

DRUGS (1)
  1. NARDIL [Suspect]
     Indication: ILL-DEFINED DISORDER
     Dosage: 45 MG DAILY
     Dates: start: 19780101

REACTIONS (3)
  - NEPHROLITHIASIS [None]
  - PAIN [None]
  - SLEEP DISORDER [None]
